FAERS Safety Report 6553471-9 (Version None)
Quarter: 2010Q1

REPORT INFORMATION
  Report Type: 
  Country: None (occurrence: None)
  Receive Date: 20100122
  Receipt Date: 20100111
  Transmission Date: 20100710
  Serious: Yes (Other)
  Sender: FDA-Public Use
  Company Number: 230367M09USA

PATIENT
  Age: 33 Year
  Sex: Female
  Weight: 68 kg

DRUGS (2)
  1. REBIF [Suspect]
     Indication: MULTIPLE SCLEROSIS
     Dosage: 44 MCG, 3 IN 1 WEEKS, SUBCUTANEOUS
     Route: 058
     Dates: end: 20090810
  2. FEMCON (NORETHISTERONE  /00044901/) [Concomitant]

REACTIONS (4)
  - ANGIOEDEMA [None]
  - EAR PRURITUS [None]
  - FEELING HOT [None]
  - SINUS HEADACHE [None]
